FAERS Safety Report 17682231 (Version 5)
Quarter: 2020Q2

REPORT INFORMATION
  Report Type: Spontaneous
  Country: FR (occurrence: FR)
  Receive Date: 20200418
  Receipt Date: 20200616
  Transmission Date: 20200714
  Serious: Yes (Death, Life-Threatening, Hospitalization, Other)
  Sender: FDA-Public Use
  Company Number: FR-AUROBINDO-AUR-APL-2020-018196

PATIENT
  Age: 9 Year
  Sex: Female
  Weight: 30 kg

DRUGS (2)
  1. PARACETAMOL TABLET 500MG [Suspect]
     Active Substance: ACETAMINOPHEN
     Dosage: 16.7 MG/KG 4 HOUR
     Route: 048
  2. PARACETAMOL TABLET 500MG [Suspect]
     Active Substance: ACETAMINOPHEN
     Indication: TOOTHACHE
     Dosage: 4 DOSAGE FORM TOTAL (FOUR THERAPEUTIC DOSES OF ACETAMINOPHEN AT 4-H INTERVALS)
     Route: 048

REACTIONS (26)
  - Acute hepatic failure [Fatal]
  - Hepatic steatosis [Fatal]
  - Haemodynamic instability [Fatal]
  - Somnolence [Unknown]
  - Mydriasis [Fatal]
  - Vomiting [Not Recovered/Not Resolved]
  - Headache [Unknown]
  - Brain death [Fatal]
  - Hepatic failure [Fatal]
  - Drug-induced liver injury [Fatal]
  - Intracranial pressure increased [Fatal]
  - Hepatitis [Fatal]
  - Renal tubular necrosis [Fatal]
  - Renal failure [Fatal]
  - Brain oedema [Fatal]
  - Subarachnoid haemorrhage [Fatal]
  - Hepatic necrosis [Fatal]
  - Hepatic infiltration eosinophilic [Fatal]
  - Encephalopathy [Fatal]
  - Toxicity to various agents [Fatal]
  - Hepatitis fulminant [Fatal]
  - Subdural haemorrhage [Fatal]
  - Confusional state [Unknown]
  - Cardiac failure [Fatal]
  - Hepatorenal syndrome [Fatal]
  - Abdominal pain [Unknown]
